FAERS Safety Report 10286595 (Version 2)
Quarter: 2014Q3

REPORT INFORMATION
  Report Type: Spontaneous
  Country: JP (occurrence: JP)
  Receive Date: 20140709
  Receipt Date: 20140709
  Transmission Date: 20150326
  Serious: Yes (Death, Life-Threatening, Hospitalization)
  Sender: FDA-Public Use
  Company Number: PHHY2014JP075100

PATIENT
  Age: 64 Year
  Sex: Female
  Weight: 41 kg

DRUGS (11)
  1. ALFAROL [Concomitant]
     Active Substance: ALFACALCIDOL
     Dosage: 1 UG
     Route: 048
  2. AFINITOR [Suspect]
     Active Substance: EVEROLIMUS
     Indication: BREAST CANCER RECURRENT
     Dosage: 10 MG, DAILY
     Route: 048
     Dates: start: 20140530, end: 20140610
  3. NEUROTROPIN [Concomitant]
     Active Substance: NEUROTROPIN
     Dosage: 16 IU
     Route: 048
  4. REBAMIPIDE [Concomitant]
     Active Substance: REBAMIPIDE
     Dosage: 300 MG
     Route: 048
  5. METHYCOBAL [Concomitant]
     Active Substance: METHYLCOBALAMIN
     Dosage: 1500 UG
     Route: 048
  6. LYRICA [Concomitant]
     Active Substance: PREGABALIN
     Dosage: 75 MG
     Route: 048
  7. FUROSEMIDE. [Concomitant]
     Active Substance: FUROSEMIDE
     Dosage: 400 MG
     Route: 048
  8. GLAKAY [Concomitant]
     Dosage: 45 MG
     Route: 048
  9. AFINITOR [Suspect]
     Active Substance: EVEROLIMUS
     Dosage: 5 MG, DAILY
     Route: 048
     Dates: start: 20140617, end: 20140623
  10. AROMASIN [Concomitant]
     Active Substance: EXEMESTANE
     Indication: BREAST CANCER RECURRENT
     Dosage: 25 MG
     Route: 048
     Dates: start: 20140530, end: 20140623
  11. LOXOPROFEN [Concomitant]
     Active Substance: LOXOPROFEN
     Dosage: 180 MG
     Route: 048

REACTIONS (4)
  - Malignant pleural effusion [Fatal]
  - Metastases to liver [Fatal]
  - Malignant neoplasm progression [Unknown]
  - Thrombocytopenia [Recovered/Resolved]

NARRATIVE: CASE EVENT DATE: 20140610
